FAERS Safety Report 7389646-9 (Version None)
Quarter: 2011Q2

REPORT INFORMATION
  Report Type: 
  Country: None (occurrence: None)
  Receive Date: 20110401
  Receipt Date: 20110323
  Transmission Date: 20111010
  Serious: No
  Sender: FDA-Public Use
  Company Number: 2009BI009423

PATIENT
  Sex: Male

DRUGS (1)
  1. TYSABRI [Suspect]
     Indication: MULTIPLE SCLEROSIS
     Route: 042
     Dates: start: 20090105

REACTIONS (7)
  - MOTOR DYSFUNCTION [None]
  - APHASIA [None]
  - GAIT DISTURBANCE [None]
  - COORDINATION ABNORMAL [None]
  - MUSCLE SPASTICITY [None]
  - BALANCE DISORDER [None]
  - MEMORY IMPAIRMENT [None]
